FAERS Safety Report 8259554-X (Version None)
Quarter: 2012Q2

REPORT INFORMATION
  Report Type: 
  Country: None (occurrence: None)
  Receive Date: 20120404
  Receipt Date: 20120329
  Transmission Date: 20120825
  Serious: Yes (Other)
  Sender: FDA-Public Use
  Company Number: PHEH2012US006980

PATIENT
  Sex: Female

DRUGS (1)
  1. RECLAST [Suspect]
     Route: 042
     Dates: start: 20111117

REACTIONS (3)
  - OSTEOARTHRITIS [None]
  - RHEUMATOID ARTHRITIS [None]
  - MULTIPLE MYELOMA [None]
